FAERS Safety Report 8061011-0 (Version None)
Quarter: 2012Q1

REPORT INFORMATION
  Report Type: 
  Country: None (occurrence: None)
  Receive Date: 20120120
  Receipt Date: 20120112
  Transmission Date: 20120608
  Serious: Yes (Other)
  Sender: FDA-Public Use
  Company Number: CHPA2012US001060

PATIENT
  Age: 77 Year
  Sex: Female

DRUGS (6)
  1. GLIPIZIDE [Concomitant]
     Indication: DIABETES MELLITUS
  2. PREVACID 24 HR [Suspect]
     Indication: NAUSEA
     Dosage: 15 MG, QD
     Route: 048
     Dates: start: 20120109
  3. ALLOPURINOL [Concomitant]
     Indication: GOUT
  4. METFORMIN HCL [Concomitant]
     Indication: DIABETES MELLITUS
  5. DIAZEPAM [Concomitant]
     Indication: ANXIETY
     Dosage: UNK
     Dates: start: 20120102
  6. TOPROL-XL [Concomitant]
     Dosage: UNK

REACTIONS (7)
  - HEADACHE [None]
  - INSOMNIA [None]
  - BLOOD GLUCOSE FLUCTUATION [None]
  - WRONG TECHNIQUE IN DRUG USAGE PROCESS [None]
  - BLOOD PRESSURE FLUCTUATION [None]
  - OFF LABEL USE [None]
  - EXPIRED DRUG ADMINISTERED [None]
